FAERS Safety Report 6634460-2 (Version None)
Quarter: 2010Q1

REPORT INFORMATION
  Report Type: 
  Country: None (occurrence: None)
  Receive Date: 20100315
  Receipt Date: 20100308
  Transmission Date: 20100710
  Serious: Yes (Hospitalization)
  Sender: FDA-Public Use
  Company Number: CA-B.I. PHARMACEUTICALS,INC./RIDGEFIELD-2010-CN-00158CN

PATIENT
  Age: 62 Year
  Sex: Male
  Weight: 99.79 kg

DRUGS (1)
  1. FLOMAX [Suspect]
     Dosage: 0.4 MG
     Route: 048

REACTIONS (1)
  - SUPRAVENTRICULAR TACHYCARDIA [None]
